FAERS Safety Report 24716037 (Version 1)
Quarter: 2024Q4

REPORT INFORMATION
  Report Type: Spontaneous
  Country: US (occurrence: US)
  Receive Date: 20241210
  Receipt Date: 20241210
  Transmission Date: 20250114
  Serious: No
  Sender: ROCHE
  Company Number: US-ROCHE-10000149819

PATIENT

DRUGS (1)
  1. KADCYLA [Suspect]
     Active Substance: ADO-TRASTUZUMAB EMTANSINE
     Indication: Product use in unapproved indication
     Route: 065

REACTIONS (6)
  - Onychomadesis [Unknown]
  - Neuropathy peripheral [Unknown]
  - Onycholysis [Unknown]
  - Nail ridging [Unknown]
  - Onychoclasis [Unknown]
  - Nail disorder [Unknown]
